FAERS Safety Report 10598931 (Version 1)
Quarter: 2014Q4

REPORT INFORMATION
  Report Type: Report from Study
  Country: CL (occurrence: CL)
  Receive Date: 20141121
  Receipt Date: 20141121
  Transmission Date: 20150529
  Serious: Yes (Hospitalization)
  Sender: FDA-Public Use
  Company Number: CL-BRISTOL-MYERS SQUIBB COMPANY-21609060

PATIENT
  Age: 61 Year
  Sex: Female

DRUGS (2)
  1. VITAMINS [Concomitant]
     Active Substance: VITAMINS
  2. ORENCIA [Suspect]
     Active Substance: ABATACEPT
     Indication: RHEUMATOID ARTHRITIS
     Dosage: INTERRUPTED ON OCT14:RESTARTED ON NOV14
     Route: 058
     Dates: start: 20131009

REACTIONS (1)
  - Medical device complication [Recovered/Resolved]

NARRATIVE: CASE EVENT DATE: 20141021
